FAERS Safety Report 19034635 (Version 3)
Quarter: 2022Q3

REPORT INFORMATION
  Report Type: Report from Study
  Country: US (occurrence: US)
  Receive Date: 20210320
  Receipt Date: 20220921
  Transmission Date: 20221027
  Serious: Yes (Other)
  Sender: FDA-Public Use
  Company Number: US-TAKEDA-2021TUS015934

PATIENT
  Sex: Female
  Weight: 27 kg

DRUGS (14)
  1. HUMAN IMMUNOGLOBULIN G [Suspect]
     Active Substance: HUMAN IMMUNOGLOBULIN G
     Indication: Hypogammaglobulinaemia
     Dosage: 5 GRAM, Q2WEEKS
     Route: 058
     Dates: start: 20210303
  2. HUMAN IMMUNOGLOBULIN G [Suspect]
     Active Substance: HUMAN IMMUNOGLOBULIN G
     Indication: Immunodeficiency common variable
     Dosage: 7 GRAM, Q2WEEKS
     Route: 058
     Dates: start: 20210303
  3. ACETAMINOPHEN [Concomitant]
     Active Substance: ACETAMINOPHEN
  4. DIPHENHYDRAMINE [Concomitant]
     Active Substance: DIPHENHYDRAMINE
  5. EPINEPHRINE [Concomitant]
     Active Substance: EPINEPHRINE
  6. ALBUTEROL SULFATE [Concomitant]
     Active Substance: ALBUTEROL SULFATE
  7. MOMETASONE FUROATE [Concomitant]
     Active Substance: MOMETASONE FUROATE
  8. ZYRTEC-D [Concomitant]
     Active Substance: CETIRIZINE HYDROCHLORIDE\PSEUDOEPHEDRINE HYDROCHLORIDE
  9. VITAMINS [Concomitant]
     Active Substance: VITAMINS
  10. Lmx [Concomitant]
  11. FLUTICASONE [Concomitant]
     Active Substance: FLUTICASONE
  12. LIDOCAINE AND PRILOCAINE [Concomitant]
     Active Substance: LIDOCAINE\PRILOCAINE
  13. ALBUTEROL SULFATE [Concomitant]
     Active Substance: ALBUTEROL SULFATE
  14. CHILDRENS CHEWABLE VITAMINS [Concomitant]

REACTIONS (7)
  - Pneumonia [Unknown]
  - Allergy to arthropod sting [Unknown]
  - Food allergy [Unknown]
  - Infusion site extravasation [Unknown]
  - Eye swelling [Unknown]
  - Injection site pruritus [Unknown]
  - Infusion related reaction [Unknown]
